FAERS Safety Report 5694619-8 (Version None)
Quarter: 2008Q2

REPORT INFORMATION
  Report Type: 
  Country: None (occurrence: None)
  Receive Date: 20080404
  Receipt Date: 20080325
  Transmission Date: 20081010
  Serious: Yes (Hospitalization)
  Sender: FDA-Public Use
  Company Number: FR-GENENTECH-251685

PATIENT
  Sex: Female

DRUGS (7)
  1. HERCEPTIN [Suspect]
     Indication: BREAST NEOPLASM
     Dosage: UNK, UNK
     Route: 042
     Dates: start: 20060701, end: 20070602
  2. RIVOTRIL [Suspect]
     Indication: MYOCLONUS
     Dosage: UNK, UNK
     Route: 048
     Dates: start: 20060901
  3. ARIMIDEX [Suspect]
     Indication: BREAST NEOPLASM
     Dosage: UNK, UNK
     Route: 048
     Dates: start: 20060701, end: 20070602
  4. PREVISCAN [Suspect]
     Indication: VENOUS THROMBOSIS
     Dosage: 0.75 UNK, UNK
     Route: 048
     Dates: start: 20060501, end: 20070602
  5. RAMIPRIL [Suspect]
     Indication: DRUG USE FOR UNKNOWN INDICATION
     Dosage: UNK, UNK
     Route: 048
     Dates: end: 20070602
  6. ABILIFY [Suspect]
     Indication: SCHIZOPHRENIA
     Dosage: 10 MG, BID
     Route: 048
     Dates: end: 20070602
  7. ZYPREXA [Concomitant]
     Indication: DRUG USE FOR UNKNOWN INDICATION

REACTIONS (1)
  - BONE MARROW FAILURE [None]
